FAERS Safety Report 7854625-1 (Version None)
Quarter: 2011Q3

REPORT INFORMATION
  Report Type: 
  Country: None (occurrence: None)
  Receive Date: 20110916
  Receipt Date: 20101214
  Transmission Date: 20111222
  Serious: Yes (Other)
  Sender: FDA-Public Use
  Company Number: 2010SP064623

PATIENT
  Age: 19 Year
  Sex: Female
  Weight: 101.6965 kg

DRUGS (1)
  1. IMPLANON [Suspect]
     Indication: CONTRACEPTION
     Dosage: 68 MG; SBDE
     Route: 059
     Dates: start: 20101129, end: 20101210

REACTIONS (7)
  - APPLICATION SITE SWELLING [None]
  - CELLULITIS [None]
  - IMPAIRED HEALING [None]
  - APPLICATION SITE PAIN [None]
  - IMPLANT SITE NECROSIS [None]
  - APPLICATION SITE HAEMATOMA [None]
  - WOUND SECRETION [None]
